FAERS Safety Report 16485685 (Version 4)
Quarter: 2022Q1

REPORT INFORMATION
  Report Type: Spontaneous
  Country: US (occurrence: US)
  Receive Date: 20190627
  Receipt Date: 20220214
  Transmission Date: 20220424
  Serious: No
  Sender: FDA-Public Use
  Company Number: US-SA-2018SA070337

PATIENT
  Age: 44 Year
  Sex: Female

DRUGS (1)
  1. AUBAGIO [Suspect]
     Active Substance: TERIFLUNOMIDE
     Indication: Multiple sclerosis
     Dosage: 7 MG,QD
     Route: 048
     Dates: start: 20170824

REACTIONS (6)
  - Pruritus [Unknown]
  - Depression [Unknown]
  - Rash macular [Unknown]
  - Alopecia [Unknown]
  - Vertigo [Unknown]
  - Unevaluable investigation [Unknown]

NARRATIVE: CASE EVENT DATE: 20180201
